FAERS Safety Report 6686929-2 (Version None)
Quarter: 2010Q2

REPORT INFORMATION
  Report Type: 
  Country: None (occurrence: None)
  Receive Date: 20100419
  Receipt Date: 20100408
  Transmission Date: 20101027
  Serious: Yes (Disabling)
  Sender: FDA-Public Use
  Company Number: PHHY2010CN19603

PATIENT
  Age: 13 Year
  Sex: Female

DRUGS (3)
  1. GLEEVEC [Suspect]
     Indication: CHRONIC MYELOID LEUKAEMIA
     Dosage: TABLET 400 MG; QD
     Route: 048
     Dates: start: 20091201, end: 20100329
  2. GLEEVEC [Suspect]
     Dosage: 400 MG; 1 TABLET ONCE DAILY
     Route: 048
  3. GLEEVEC [Suspect]
     Dosage: CAPSULE
     Route: 048
     Dates: end: 20061001

REACTIONS (4)
  - ABDOMINAL PAIN [None]
  - DIARRHOEA [None]
  - LEARNING DISABILITY [None]
  - VOMITING [None]
